FAERS Safety Report 6449258-8 (Version None)
Quarter: 2009Q4

REPORT INFORMATION
  Report Type: 
  Country: None (occurrence: None)
  Receive Date: 20091112
  Receipt Date: 20090720
  Transmission Date: 20100525
  Serious: Yes (Hospitalization)
  Sender: FDA-Public Use
  Company Number: WAES 0907USA03035

PATIENT
  Sex: Male

DRUGS (2)
  1. ZOLINZA [Suspect]
     Indication: LYMPHOMA
     Dosage: 200 MG BID PO
     Route: 048
  2. ASPARAGINASE [Concomitant]

REACTIONS (1)
  - HYPERGLYCAEMIA [None]
